FAERS Safety Report 4521291-2 (Version None)
Quarter: 2004Q4

REPORT INFORMATION
  Report Type: 
  Country: None (occurrence: None)
  Receive Date: 20041203
  Receipt Date: 20041119
  Transmission Date: 20050328
  Serious: Yes (Other)
  Sender: FDA-Public Use
  Company Number: 210679

PATIENT
  Age: 28 Year
  Sex: Female

DRUGS (3)
  1. XOLAIR [Suspect]
     Indication: ASTHMA
     Dosage: 375 MG, SUBCUTANEOUS
     Route: 058
     Dates: start: 20041101
  2. STEROIDS NOS (STEROIDS NOS) [Suspect]
     Dosage: ORAL
     Route: 048
  3. LAMICTAL [Concomitant]

REACTIONS (2)
  - BALANCE DISORDER [None]
  - MYOPATHY STEROID [None]
